FAERS Safety Report 19062428 (Version 1)
Quarter: 2021Q1

REPORT INFORMATION
  Report Type: Spontaneous
  Country: FR (occurrence: FR)
  Receive Date: 20210326
  Receipt Date: 20210326
  Transmission Date: 20210420
  Serious: Yes (Other)
  Sender: FDA-Public Use
  Company Number: FR-PFIZER INC-2021292983

PATIENT
  Age: 87 Year
  Sex: Male
  Weight: 54 kg

DRUGS (1)
  1. VYNDAQEL [Suspect]
     Active Substance: TAFAMIDIS MEGLUMINE
     Dosage: 20 MG, DAILY

REACTIONS (2)
  - Cardiac failure chronic [Unknown]
  - Neoplasm malignant [Unknown]
